FAERS Safety Report 9746684 (Version 2)
Quarter: 2014Q1

REPORT INFORMATION
  Report Type: Spontaneous
  Country: US (occurrence: US)
  Receive Date: 20131211
  Receipt Date: 20140127
  Transmission Date: 20141002
  Serious: Yes (Other)
  Sender: FDA-Public Use
  Company Number: US-PFIZER INC-2013353762

PATIENT
  Age: 30 Year
  Sex: Female

DRUGS (11)
  1. MS CONTIN [Suspect]
     Indication: THORACIC OUTLET SYNDROME
     Dosage: 1 DF, UNK
     Route: 048
     Dates: start: 2007
  2. MS CONTIN [Suspect]
     Dosage: 60 MG Q6 HOURS
     Route: 048
     Dates: start: 2007
  3. MS CONTIN [Suspect]
     Dosage: 130 MG, 2X/DAY
     Route: 048
     Dates: start: 20070309, end: 20070501
  4. XANAX [Concomitant]
     Dosage: UNK
     Dates: end: 20070501
  5. SOMA [Concomitant]
     Dosage: UNK
  6. NEURONTIN [Concomitant]
     Dosage: UNK
     Dates: start: 20070220
  7. PROVIGIL [Concomitant]
     Dosage: UNK
     Dates: start: 20070220
  8. CYMBALTA [Concomitant]
     Indication: ANXIETY
     Dosage: UNK
     Dates: start: 20070501
  9. LYRICA [Concomitant]
     Indication: PAIN
  10. EFFEXOR [Concomitant]
  11. METHADONE [Concomitant]
     Dosage: UNK
     Dates: start: 20070501

REACTIONS (8)
  - Tooth loss [Not Recovered/Not Resolved]
  - Dry mouth [Unknown]
  - Back pain [Unknown]
  - Neck pain [Unknown]
  - Pain in extremity [Unknown]
  - Anxiety [Unknown]
  - Pain [Unknown]
  - Breakthrough pain [Unknown]
